FAERS Safety Report 4317494-2 (Version None)
Quarter: 2004Q1

REPORT INFORMATION
  Report Type: 
  Country: None (occurrence: None)
  Receive Date: 20040312
  Receipt Date: 20040309
  Transmission Date: 20041129
  Serious: Yes (Life-Threatening, Hospitalization, Other)
  Sender: FDA-Public Use
  Company Number: HQ5805116DEC2002

PATIENT
  Age: 62 Year
  Sex: Male

DRUGS (1)
  1. GEMTUZUMAB OZOGAMICIN (GEMTUZUMAB OZOGAMICIN, INJECTION) [Suspect]
     Dosage: 11 MG 1X PER 1 DAY
     Route: 042
     Dates: start: 20021031, end: 20021031

REACTIONS (5)
  - DISSEMINATED INTRAVASCULAR COAGULATION [None]
  - ENCEPHALOPATHY [None]
  - HEPATOTOXICITY [None]
  - PYREXIA [None]
  - RECTAL HAEMORRHAGE [None]
